FAERS Safety Report 9849117 (Version 2)
Quarter: 2014Q1

REPORT INFORMATION
  Report Type: Spontaneous
  Country: BR (occurrence: BR)
  Receive Date: 20140128
  Receipt Date: 20140128
  Transmission Date: 20141002
  Serious: No
  Sender: FDA-Public Use
  Company Number: PHHY2013BR144317

PATIENT
  Sex: Male

DRUGS (2)
  1. TEGRETOL CR [Suspect]
     Indication: EPILEPSY
     Dosage: 2 UKN, DAILY
     Route: 048
  2. TEGRETOL [Suspect]
     Dosage: UNK UKN, UNK

REACTIONS (1)
  - Drug dispensing error [Unknown]
